FAERS Safety Report 7948932-1 (Version None)
Quarter: 2011Q4

REPORT INFORMATION
  Report Type: 
  Country: None (occurrence: None)
  Receive Date: 20111130
  Receipt Date: 20111118
  Transmission Date: 20120403
  Serious: Yes (Hospitalization)
  Sender: FDA-Public Use
  Company Number: PHHO2011FR018743

PATIENT
  Sex: Male
  Weight: 65 kg

DRUGS (3)
  1. NEORAL [Suspect]
     Indication: RENAL TRANSPLANT
     Dosage: 100 MG, DAILY
     Route: 048
     Dates: start: 20110428
  2. PREDNISONE TAB [Concomitant]
     Indication: RENAL TRANSPLANT
     Dosage: 50 MG, DAILY
     Route: 048
     Dates: start: 20110427
  3. MYCOPHENOLATE MOFETIL (CELLCEPT) [Concomitant]
     Indication: RENAL TRANSPLANT
     Dosage: 2 G, DAILY
     Route: 048
     Dates: start: 20110427

REACTIONS (1)
  - HYDRONEPHROSIS [None]
